FAERS Safety Report 11326667 (Version 1)
Quarter: 2015Q3

REPORT INFORMATION
  Report Type: Spontaneous
  Country: KR (occurrence: KR)
  Receive Date: 20150731
  Receipt Date: 20150731
  Transmission Date: 20151125
  Serious: No
  Sender: FDA-Public Use
  Company Number: KR-JNJFOC-20150721264

PATIENT

DRUGS (1)
  1. USTEKINUMAB [Suspect]
     Active Substance: USTEKINUMAB
     Indication: PSORIASIS
     Route: 058

REACTIONS (8)
  - Upper respiratory tract infection [Unknown]
  - Pruritus [Recovered/Resolved]
  - Arthralgia [Unknown]
  - Nasopharyngitis [Unknown]
  - Hepatic function abnormal [Recovered/Resolved]
  - Urticaria [Unknown]
  - Headache [Unknown]
  - Hyperglycaemia [Unknown]
